FAERS Safety Report 8741687 (Version 2)
Quarter: 2012Q4

REPORT INFORMATION
  Report Type: 
  Country: US (occurrence: US)
  Receive Date: 20120824
  Receipt Date: 20120907
  Transmission Date: 20130627
  Serious: Yes (Hospitalization)
  Sender: FDA-Public Use
  Company Number: US-BIOGENIDEC-2012BI032011

PATIENT
  Age: 65 Year
  Sex: Female

DRUGS (1)
  1. AVONEX [Suspect]
     Indication: MULTIPLE SCLEROSIS
     Route: 030
     Dates: start: 20010822

REACTIONS (7)
  - Cerebrovascular accident [Recovered/Resolved]
  - Arthritis [Unknown]
  - Speech disorder [Not Recovered/Not Resolved]
  - Aphasia [Unknown]
  - Injection site pain [Unknown]
  - Injection site bruising [Recovered/Resolved]
  - Fatigue [Not Recovered/Not Resolved]
